FAERS Safety Report 9147237 (Version 2)
Quarter: 2013Q1

REPORT INFORMATION
  Report Type: Spontaneous
  Country: JP (occurrence: None)
  Receive Date: 20130207
  Receipt Date: 20130222
  Transmission Date: 20140127
  Serious: Yes (Death)
  Sender: FDA-Public Use
  Company Number: TCI2013A00583

PATIENT
  Age: 74 Year
  Sex: Male

DRUGS (1)
  1. ROZEREM [Suspect]
     Indication: INSOMNIA
     Dosage: 8  MG  (8 MG,  1 IN 1 D)   PER ORAL?18/OCT/2012  -  17/NOV/2012   29  DAYS??
     Route: 048
     Dates: start: 20121019, end: 20121117

REACTIONS (1)
  - Death [None]
